FAERS Safety Report 15990723 (Version 1)
Quarter: 2019Q1

REPORT INFORMATION
  Report Type: Spontaneous
  Country: US (occurrence: US)
  Receive Date: 20190221
  Receipt Date: 20190221
  Transmission Date: 20190418
  Serious: Yes (Death)
  Sender: FDA-Public Use
  Company Number: None

PATIENT
  Age: 78 Year
  Sex: Female

DRUGS (14)
  1. CALTRATE [Concomitant]
     Active Substance: CALCIUM CARBONATE
  2. GLIMEPIRIDE 1MG [Concomitant]
     Active Substance: GLIMEPIRIDE
  3. METFORMIN [Concomitant]
     Active Substance: METFORMIN HYDROCHLORIDE
  4. LISINOPRIL 10MG [Concomitant]
     Active Substance: LISINOPRIL
  5. PROCRIT [Suspect]
     Active Substance: ERYTHROPOIETIN
     Indication: CHOLESTEATOMA
     Dosage: ?          OTHER FREQUENCY:Q 3 WEEKS;?
     Dates: start: 20180926, end: 20190220
  6. FLONASE 0.05% [Concomitant]
  7. HALOBETASOL 0.05% [Concomitant]
  8. IRON 325MG [Concomitant]
  9. LEVOTHYROXIN 100MCG [Concomitant]
  10. LIPITOR [Concomitant]
     Active Substance: ATORVASTATIN CALCIUM
  11. LETROZOLE 2.5MG [Concomitant]
     Active Substance: LETROZOLE
  12. OMEPRAZOLE 10MG [Concomitant]
     Active Substance: OMEPRAZOLE
  13. ASPIRIN 81MG [Concomitant]
     Active Substance: ASPIRIN
  14. LORATADINE 10MG [Concomitant]
     Active Substance: LORATADINE

REACTIONS (1)
  - Death [None]

NARRATIVE: CASE EVENT DATE: 20190220
